FAERS Safety Report 21499755 (Version 2)
Quarter: 2022Q4

REPORT INFORMATION
  Report Type: Spontaneous
  Country: CA (occurrence: CA)
  Receive Date: 20221024
  Receipt Date: 20221125
  Transmission Date: 20230113
  Serious: Yes (Other)
  Sender: FDA-Public Use
  Company Number: CA-PFIZER INC-202201242450

PATIENT
  Age: 31 Year
  Sex: Male

DRUGS (5)
  1. ABRILADA [Suspect]
     Active Substance: ADALIMUMAB-AFZB
     Indication: Hidradenitis
     Dosage: 40 MG, WEEKLY, INDUCTION 160MG WEEK 0, 80MG WEEK 2 THEN 40MG EVERY WEEK STARTING WEEK 4
     Route: 058
     Dates: start: 20220721
  2. ABRILADA [Suspect]
     Active Substance: ADALIMUMAB-AFZB
     Dosage: 40 MG, WEEKLY, INDUCTION 160MG WEEK 0, 80MG WEEK 2 THEN 40MG EVERY WEEK STARTING WEEK 4
     Route: 058
  3. BENZOYL PEROXIDE\CLINDAMYCIN [Concomitant]
     Active Substance: BENZOYL PEROXIDE\CLINDAMYCIN
     Dosage: 1 DF
     Dates: start: 20220525
  4. CLOZAPINE [Concomitant]
     Active Substance: CLOZAPINE
     Dosage: 125 MG
     Dates: start: 2013
  5. CONCERTA [Concomitant]
     Active Substance: METHYLPHENIDATE HYDROCHLORIDE
     Dosage: 27 MG, 1X/DAY
     Dates: start: 2021

REACTIONS (1)
  - Gastric ulcer [Not Recovered/Not Resolved]

NARRATIVE: CASE EVENT DATE: 20220101
